FAERS Safety Report 8088323-9 (Version None)
Quarter: 2012Q1

REPORT INFORMATION
  Report Type: 
  Country: None (occurrence: None)
  Receive Date: 20120128
  Receipt Date: 20110606
  Transmission Date: 20120608
  Serious: Yes (Other)
  Sender: FDA-Public Use
  Company Number: US-ABBOTT-11P-163-0730655-00

PATIENT
  Age: 63 Year
  Sex: Female

DRUGS (17)
  1. PREDNISONE TAB [Concomitant]
     Indication: PRODUCT USED FOR UNKNOWN INDICATION
  2. CITRACAL [Concomitant]
     Indication: PRODUCT USED FOR UNKNOWN INDICATION
  3. VOLTAREN [Concomitant]
     Indication: PRODUCT USED FOR UNKNOWN INDICATION
  4. ZYRTEC [Concomitant]
     Indication: PRODUCT USED FOR UNKNOWN INDICATION
  5. HUMIRA [Suspect]
     Indication: RHEUMATOID ARTHRITIS
     Route: 058
     Dates: start: 20100101, end: 20110504
  6. PREMARIN [Concomitant]
     Indication: PRODUCT USED FOR UNKNOWN INDICATION
  7. XANAX [Concomitant]
     Indication: PRODUCT USED FOR UNKNOWN INDICATION
  8. LIDODERM [Concomitant]
     Indication: PRODUCT USED FOR UNKNOWN INDICATION
     Dosage: PATCH
  9. NORCO [Concomitant]
     Indication: PRODUCT USED FOR UNKNOWN INDICATION
  10. SYNTHROID [Concomitant]
     Indication: PRODUCT USED FOR UNKNOWN INDICATION
  11. LEXAPRO [Concomitant]
     Indication: PRODUCT USED FOR UNKNOWN INDICATION
  12. PROSED DS [Concomitant]
     Indication: PRODUCT USED FOR UNKNOWN INDICATION
  13. WELCHOL [Concomitant]
     Indication: PRODUCT USED FOR UNKNOWN INDICATION
  14. BLOOD PRESSURE MEDICATION [Concomitant]
     Indication: HYPERTENSION
  15. AMBIEN [Concomitant]
     Indication: PRODUCT USED FOR UNKNOWN INDICATION
  16. COLACE [Concomitant]
     Indication: PRODUCT USED FOR UNKNOWN INDICATION
  17. OPANA ER [Concomitant]
     Indication: PRODUCT USED FOR UNKNOWN INDICATION

REACTIONS (4)
  - KNEE ARTHROPLASTY [None]
  - SURGERY [None]
  - URINARY TRACT INFECTION [None]
  - ONYCHOMYCOSIS [None]
